FAERS Safety Report 6305938-6 (Version None)
Quarter: 2009Q3

REPORT INFORMATION
  Report Type: 
  Country: None (occurrence: None)
  Receive Date: 20090812
  Receipt Date: 20090803
  Transmission Date: 20100115
  Serious: Yes (Other)
  Sender: FDA-Public Use
  Company Number: BR-PFIZER INC-2009250096

PATIENT
  Age: 24 Year

DRUGS (2)
  1. DEPO-PROVERA [Suspect]
     Indication: CONTRACEPTION
     Dosage: 150 MG, EVERY 3 MONTHS
     Route: 030
     Dates: start: 20080101, end: 20090527
  2. BEROTEC [Concomitant]
     Indication: ASTHMATIC CRISIS
     Dosage: UNK

REACTIONS (2)
  - INJECTION SITE CELLULITIS [None]
  - WEIGHT INCREASED [None]
